FAERS Safety Report 5090281-6 (Version None)
Quarter: 2006Q3

REPORT INFORMATION
  Report Type: 
  Country: None (occurrence: None)
  Receive Date: 20060828
  Receipt Date: 20060705
  Transmission Date: 20061208
  Serious: No
  Sender: FDA-Public Use
  Company Number: US-GLAXOSMITHKLINE-A0611181A

PATIENT
  Age: 44 Year
  Sex: Male

DRUGS (3)
  1. WELLBUTRIN XL [Suspect]
     Indication: DEPRESSION
     Dosage: 1TAB PER DAY
     Route: 048
     Dates: start: 20060630
  2. EFFEXOR XR [Concomitant]
  3. PREVACID [Concomitant]

REACTIONS (1)
  - DRUG ADMINISTRATION ERROR [None]
